FAERS Safety Report 4514748-1 (Version None)
Quarter: 2004Q4

REPORT INFORMATION
  Report Type: 
  Country: None (occurrence: None)
  Receive Date: 20041201
  Receipt Date: 20041119
  Transmission Date: 20050328
  Serious: Yes (Hospitalization)
  Sender: FDA-Public Use
  Company Number: US-JNJFOC-20041105322

PATIENT
  Sex: Female
  Weight: 72.12 kg

DRUGS (14)
  1. INFLIXIMAB [Suspect]
     Indication: RHEUMATOID ARTHRITIS
     Route: 042
  2. FOSAMAX [Concomitant]
  3. LIPITOR [Concomitant]
  4. METHOTREXATE [Concomitant]
  5. FOLIC ACID [Concomitant]
  6. TOPROL-XL [Concomitant]
  7. LISINOPRIL [Concomitant]
     Dosage: 20/25 DAILY
  8. CARDIZEM [Concomitant]
  9. PREDNISONE [Concomitant]
     Dosage: 1-3 MG DAILY
  10. ASPIRIN [Concomitant]
  11. COLACE [Concomitant]
  12. OSCAL D [Concomitant]
  13. OSCAL D [Concomitant]
  14. IRON [Concomitant]

REACTIONS (2)
  - ARRHYTHMIA [None]
  - ATRIAL FLUTTER [None]
